FAERS Safety Report 5950248-X (Version None)
Quarter: 2008Q4

REPORT INFORMATION
  Report Type: 
  Country: None (occurrence: None)
  Receive Date: 20081112
  Receipt Date: 20081104
  Transmission Date: 20090506
  Serious: Yes (Other)
  Sender: FDA-Public Use
  Company Number: GB-TEVA-180206ISR

PATIENT
  Age: 6 Year

DRUGS (4)
  1. METHOTREXATE [Suspect]
     Indication: BONE MARROW TRANSPLANT
  2. CYCLOSPORINE [Suspect]
     Indication: BONE MARROW TRANSPLANT
  3. CYCLOPHOSPHAMIDE [Suspect]
     Indication: BONE MARROW TRANSPLANT
  4. TREOSULFAN [Suspect]
     Indication: BONE MARROW TRANSPLANT

REACTIONS (1)
  - CYTOMEGALOVIRUS INFECTION [None]
